FAERS Safety Report 7283185-1 (Version None)
Quarter: 2011Q1

REPORT INFORMATION
  Report Type: 
  Country: None (occurrence: None)
  Receive Date: 20110209
  Receipt Date: 20110204
  Transmission Date: 20110831
  Serious: Yes (Hospitalization)
  Sender: FDA-Public Use
  Company Number: FR-ROCHE-757999

PATIENT
  Sex: Male

DRUGS (5)
  1. LYRICA [Suspect]
     Indication: CEREBROVASCULAR ACCIDENT
     Route: 048
  2. PREVISCAN [Concomitant]
  3. CORDARONE [Suspect]
     Indication: ATRIAL FIBRILLATION
     Dosage: FREQUENCY: 5 DAYS ON 7
     Route: 048
     Dates: start: 20101013, end: 20110115
  4. RIVOTRIL [Suspect]
     Indication: DEPRESSION
     Dosage: DOSE: 1/2 TABLET
     Route: 048
     Dates: start: 20101013, end: 20110115
  5. PARACETAMOL [Concomitant]

REACTIONS (2)
  - SINUS BRADYCARDIA [None]
  - MALAISE [None]
